FAERS Safety Report 19079553 (Version 1)
Quarter: 2021Q1

REPORT INFORMATION
  Report Type: Spontaneous
  Country: IN (occurrence: IN)
  Receive Date: 20210331
  Receipt Date: 20210331
  Transmission Date: 20210420
  Serious: Yes (Life-Threatening, Hospitalization, Other)
  Sender: FDA-Public Use
  Company Number: IN-VALIDUS PHARMACEUTICALS LLC-IN-2021VAL000318

PATIENT
  Age: 23 Year
  Sex: Female

DRUGS (3)
  1. SODIUM HYDROGEN CARBONATE [Suspect]
     Active Substance: SODIUM BICARBONATE
     Indication: PRODUCT USED FOR UNKNOWN INDICATION
     Route: 065
  2. FUROSEMIDE. [Suspect]
     Active Substance: FUROSEMIDE
     Indication: PROPHYLAXIS
     Dosage: UNK
     Route: 065
  3. FUROSEMIDE. [Suspect]
     Active Substance: FUROSEMIDE
     Indication: FLUSHING

REACTIONS (11)
  - Hypopnoea [Unknown]
  - Hypernatraemia [Unknown]
  - Hyperchloraemia [Unknown]
  - Quadriparesis [Unknown]
  - Extensor plantar response [Unknown]
  - Paralysis [Unknown]
  - Acidosis [Unknown]
  - Quadriplegia [Unknown]
  - Muscular weakness [Unknown]
  - Hyporeflexia [Unknown]
  - Respiratory distress [Unknown]
